FAERS Safety Report 15095402 (Version 1)
Quarter: 2018Q3

REPORT INFORMATION
  Report Type: Spontaneous
  Country: FR (occurrence: FR)
  Receive Date: 20180702
  Receipt Date: 20180702
  Transmission Date: 20181010
  Serious: Yes (Other)
  Sender: FDA-Public Use
  Company Number: FR-ACCORD-068968

PATIENT
  Age: 79 Year
  Sex: Female
  Weight: 43 kg

DRUGS (11)
  1. DIFFU K [Suspect]
     Active Substance: POTASSIUM CHLORIDE
     Indication: HYPOKALAEMIA
     Dosage: 1?0?0
     Route: 048
     Dates: start: 20180123, end: 20180219
  2. TARDYFERON [Suspect]
     Active Substance: FERROUS SULFATE
     Indication: IRON DEFICIENCY ANAEMIA
     Route: 048
     Dates: start: 20180123, end: 20180206
  3. SMECTA [Suspect]
     Active Substance: MONTMORILLONITE
     Indication: DIARRHOEA
     Dosage: 1?1?1
     Route: 048
     Dates: start: 20171219, end: 20180321
  4. PARACETAMOL [Concomitant]
     Active Substance: ACETAMINOPHEN
     Indication: PRODUCT USED FOR UNKNOWN INDICATION
     Route: 048
  5. EMEND [Suspect]
     Active Substance: APREPITANT
     Indication: ANTIEMETIC SUPPORTIVE CARE
     Route: 048
     Dates: start: 20171205, end: 20180128
  6. CREON [Suspect]
     Active Substance: PANCRELIPASE AMYLASE\PANCRELIPASE LIPASE\PANCRELIPASE PROTEASE
     Indication: PANCREATIC FAILURE
     Dosage: 2?2?2?STRENGTH: 25 000 U??GASTRO?RESISTANT GRANULES IN CAPSULES
     Route: 048
     Dates: start: 20171205, end: 20180320
  7. IMODIUM [Suspect]
     Active Substance: LOPERAMIDE HYDROCHLORIDE
     Indication: DIARRHOEA
     Dosage: 2?2?2
     Route: 048
     Dates: start: 20180105, end: 20180321
  8. LASILIX FAIBLE [Suspect]
     Active Substance: FUROSEMIDE
     Indication: OEDEMA
     Dosage: STRENGTH: 20 MG
     Route: 048
     Dates: start: 20180109, end: 20180206
  9. OXALIPLATIN ARROW [Suspect]
     Active Substance: OXALIPLATIN
     Indication: PANCREATIC CARCINOMA METASTATIC
     Dosage: STRENGTH: 5 MG/ML
     Route: 042
     Dates: start: 20171205, end: 20180123
  10. ORAMORPH [Concomitant]
     Active Substance: MORPHINE SULFATE
     Indication: ABDOMINAL PAIN UPPER
     Route: 048
  11. FLUOROURACIL. [Suspect]
     Active Substance: FLUOROURACIL
     Indication: PANCREATIC CARCINOMA METASTATIC
     Dosage: STRENGTH: 50 MG/ML
     Route: 042
     Dates: start: 20171205, end: 20180123

REACTIONS (2)
  - Off label use [Unknown]
  - Rash [Not Recovered/Not Resolved]

NARRATIVE: CASE EVENT DATE: 20180123
